FAERS Safety Report 12531324 (Version 11)
Quarter: 2016Q4

REPORT INFORMATION
  Report Type: Report from Study
  Country: BR (occurrence: BR)
  Receive Date: 20160706
  Receipt Date: 20161129
  Transmission Date: 20170207
  Serious: Yes (Hospitalization, Other)
  Sender: FDA-Public Use
  Company Number: BR-JNJFOC-20160626179

PATIENT
  Age: 66 Year
  Sex: Male

DRUGS (3)
  1. ACYCLOVIR. [Concomitant]
     Active Substance: ACYCLOVIR
     Indication: HERPES VIRUS INFECTION
     Route: 048
  2. IMBRUVICA [Suspect]
     Active Substance: IBRUTINIB
     Indication: B-CELL SMALL LYMPHOCYTIC LYMPHOMA
     Route: 048
     Dates: start: 20160608
  3. IMBRUVICA [Suspect]
     Active Substance: IBRUTINIB
     Indication: CHRONIC LYMPHOCYTIC LEUKAEMIA
     Route: 048
     Dates: start: 20160608

REACTIONS (18)
  - Haemoglobin decreased [Unknown]
  - Gastrointestinal disorder [Not Recovered/Not Resolved]
  - Laboratory test abnormal [Unknown]
  - Epistaxis [Unknown]
  - Malaise [Unknown]
  - Drug ineffective [Unknown]
  - White blood cell count increased [Recovering/Resolving]
  - Coagulopathy [Unknown]
  - Lymphocyte count decreased [Recovering/Resolving]
  - Drug dose omission [Unknown]
  - Blood disorder [Unknown]
  - Platelet count decreased [Recovering/Resolving]
  - Dysphonia [Recovered/Resolved]
  - Product packaging quantity issue [Unknown]
  - Pain in extremity [Recovered/Resolved]
  - Rash erythematous [Unknown]
  - Oropharyngeal pain [Recovering/Resolving]
  - Wound [Recovered/Resolved]

NARRATIVE: CASE EVENT DATE: 201611
